FAERS Safety Report 4693189-0 (Version None)
Quarter: 2005Q2

REPORT INFORMATION
  Report Type: 
  Country: None (occurrence: None)
  Receive Date: 20050617
  Receipt Date: 20050614
  Transmission Date: 20051028
  Serious: Yes (Death, Hospitalization)
  Sender: FDA-Public Use
  Company Number: ES-SANOFI-SYNTHELABO-F01200501025

PATIENT
  Sex: Male

DRUGS (9)
  1. OXALIPLATIN [Suspect]
     Indication: NON-SMALL CELL LUNG CANCER
     Dosage: 253 MG (130 MG/M2 ON DAY 2, Q3W)
     Route: 042
     Dates: start: 20050322, end: 20050322
  2. PACLITAXEL [Suspect]
     Dosage: 390 MG (200 MG/M2 ON DAY 1 Q3W)
     Route: 042
     Dates: start: 20050321, end: 20050321
  3. DURAGESIC-100 [Concomitant]
     Dosage: 150 MG
     Route: 065
  4. FORTECORTIN [Concomitant]
     Dosage: 2 MG
     Route: 065
     Dates: end: 20050327
  5. CIPRALEX [Concomitant]
     Dosage: 10 MG
     Route: 065
  6. LEXATIN [Concomitant]
     Dosage: 3 MG
     Route: 065
  7. DUPHALAC [Concomitant]
  8. NOCTAMID [Concomitant]
     Dosage: 2 MG
     Route: 065
  9. OMEPRAZOLE [Concomitant]
     Dosage: 1 UNIT
     Route: 048

REACTIONS (2)
  - ORAL CANDIDIASIS [None]
  - PNEUMONIA [None]
